FAERS Safety Report 7969978-3 (Version None)
Quarter: 2011Q4

REPORT INFORMATION
  Report Type: 
  Country: None (occurrence: None)
  Receive Date: 20111212
  Receipt Date: 20110926
  Transmission Date: 20120403
  Serious: Yes (Other)
  Sender: FDA-Public Use
  Company Number: CH-US-EMD SERONO, INC.-230008J10CHE

PATIENT
  Sex: Male
  Weight: 3 kg

DRUGS (2)
  1. REBIF [Suspect]
     Route: 063
     Dates: start: 20070101
  2. REBIF [Suspect]
     Indication: MULTIPLE SCLEROSIS
     Route: 064

REACTIONS (5)
  - TYPE 2 DIABETES MELLITUS [None]
  - NEURODERMATITIS [None]
  - MATERNAL DRUGS AFFECTING FOETUS [None]
  - FOETAL EXPOSURE DURING PREGNANCY [None]
  - EXPOSURE DURING BREAST FEEDING [None]
